FAERS Safety Report 21574465 (Version 1)
Quarter: 2022Q4

REPORT INFORMATION
  Report Type: Spontaneous
  Country: HK (occurrence: HK)
  Receive Date: 20221109
  Receipt Date: 20221109
  Transmission Date: 20230112
  Serious: Yes (Other)
  Sender: FDA-Public Use
  Company Number: HK-002147023-NVSC2022HK247480

PATIENT
  Age: 16 Year
  Sex: Male

DRUGS (2)
  1. DABRAFENIB [Suspect]
     Active Substance: DABRAFENIB
     Indication: Gliosarcoma
     Dosage: UNK
     Route: 065
     Dates: start: 2019
  2. TRAMETINIB [Suspect]
     Active Substance: TRAMETINIB
     Indication: Gliosarcoma
     Dosage: UNK
     Route: 065
     Dates: start: 2019

REACTIONS (4)
  - Gliosarcoma [Unknown]
  - Malignant neoplasm progression [Unknown]
  - Drug resistance [Unknown]
  - Product use in unapproved indication [Unknown]

NARRATIVE: CASE EVENT DATE: 20220501
